FAERS Safety Report 10577029 (Version 3)
Quarter: 2015Q2

REPORT INFORMATION
  Report Type: Spontaneous
  Country: US (occurrence: US)
  Receive Date: 20141111
  Receipt Date: 20150417
  Transmission Date: 20150821
  Serious: Yes (Death, Other)
  Sender: FDA-Public Use
  Company Number: US-PFIZER INC-2014307978

PATIENT
  Age: 80 Year
  Sex: Female

DRUGS (21)
  1. BROVANA [Concomitant]
     Active Substance: ARFORMOTEROL TARTRATE
     Dosage: UNK, 2X/DAY
  2. MORPHINE [Concomitant]
     Active Substance: MORPHINE
     Dosage: 120 MG, 2X/DAY(MORNING AND BED)
  3. PREDNISONE. [Concomitant]
     Active Substance: PREDNISONE
     Dosage: 10 MG, 2X/DAY (MORNING AND BEDTIME)
  4. PROCHLORPERAZINE MALEATE. [Concomitant]
     Active Substance: PROCHLORPERAZINE MALEATE
     Dosage: 10 MG, AS NEEDED
  5. ATORVASTATIN [Concomitant]
     Active Substance: ATORVASTATIN
     Dosage: 20 MG, 1 AT BED TIME
  6. ALBUTEROL SULFATE. [Concomitant]
     Active Substance: ALBUTEROL SULFATE
     Dosage: 2 DF, AS NEEDED (2 PUFF PRN)
     Route: 055
  7. OMEPRAZOLE. [Concomitant]
     Active Substance: OMEPRAZOLE
     Dosage: 40 MG, 1X/DAY (20 MG 2 DOSE IN THE MORNING)
  8. POTASSIUM [Concomitant]
     Active Substance: POTASSIUM
     Dosage: 20 MEQ, 3X/DAY(LUNCH,SUPPER,BED)_
  9. CHLORTHALIDONE. [Concomitant]
     Active Substance: CHLORTHALIDONE
     Dosage: 25 MG, UNK (1/2 AT MORNING)
  10. DESONIDE. [Concomitant]
     Active Substance: DESONIDE
     Dosage: 0.5 %, AS NEEDED
  11. LEVOTHYRONINE [Concomitant]
     Dosage: 75 MG, AS NEEDED IN THE MORNING
  12. MONTELUKAST SODIUM. [Concomitant]
     Active Substance: MONTELUKAST SODIUM
     Dosage: 10 MG, AS NEEDED AT LUNCH
  13. SENOKOT-S [Concomitant]
     Active Substance: DOCUSATE SODIUM\SENNOSIDES
     Dosage: UNK, (2 OR 3 AT THE BED TIME)
  14. REVATIO [Suspect]
     Active Substance: SILDENAFIL CITRATE
     Indication: PULMONARY HYPERTENSION
     Dosage: 20 MG, 3X/DAY (MORNING, LUNCH, AND BEDTIME)
     Dates: start: 2011, end: 20141014
  15. CILOSTAZOL. [Concomitant]
     Active Substance: CILOSTAZOL
     Dosage: 100 MG, 1X/DAY (AT MORNING)
  16. DILTIAZEM HCL ER [Concomitant]
     Dosage: 180 MG, 1X/DAY AT MORNING
  17. LIOTHYRONINE [Concomitant]
     Active Substance: LIOTHYRONINE
     Dosage: 5 ?G, 1X/DAY(MORNING) AS NEEDED
  18. HYDROCODONE [Concomitant]
     Active Substance: HYDROCODONE
     Dosage: 10/325 MG AS NEEDED IN MORNING AND BEDTIME
  19. MAGNESIUM [Concomitant]
     Active Substance: MAGNESIUM
     Dosage: 250 MG, 1X/DAY(LUNCH) AS NEEDED
  20. SPIRIVA [Concomitant]
     Active Substance: TIOTROPIUM BROMIDE MONOHYDRATE
     Dosage: 18 MG, 1X/DAY
  21. TRIMACIN [Concomitant]
     Dosage: 10.1 %, CREAM AS NEEDED

REACTIONS (3)
  - Chronic obstructive pulmonary disease [Fatal]
  - Pulmonary hypertension [Fatal]
  - Breast cancer metastatic [Fatal]
